FAERS Safety Report 7244524-0 (Version None)
Quarter: 2011Q1

REPORT INFORMATION
  Report Type: 
  Country: None (occurrence: None)
  Receive Date: 20110125
  Receipt Date: 20110114
  Transmission Date: 20110831
  Serious: Yes (Other)
  Sender: FDA-Public Use
  Company Number: US-ELI_LILLY_AND_COMPANY-US201011002655

PATIENT
  Sex: Female

DRUGS (4)
  1. HUMALOG [Suspect]
     Indication: DIABETES MELLITUS
     Dosage: UNK, UNK
  2. LANTUS [Concomitant]
     Dosage: UNK, UNK
  3. HUMAN INSULIN [Suspect]
     Indication: DIABETES MELLITUS
  4. APIDRA [Concomitant]

REACTIONS (8)
  - CONFUSIONAL STATE [None]
  - DRUG INEFFECTIVE [None]
  - BLOOD GLUCOSE DECREASED [None]
  - BLOOD GLUCOSE FLUCTUATION [None]
  - HYPOGLYCAEMIC UNCONSCIOUSNESS [None]
  - COMA [None]
  - ROAD TRAFFIC ACCIDENT [None]
  - HYPOGLYCAEMIA UNAWARENESS [None]
